FAERS Safety Report 25374972 (Version 5)
Quarter: 2025Q4

REPORT INFORMATION
  Report Type: Report from Study
  Country: PE (occurrence: PE)
  Receive Date: 20250529
  Receipt Date: 20251110
  Transmission Date: 20260117
  Serious: Yes (Death, Hospitalization, Other)
  Sender: NOVARTIS
  Company Number: PE-002147023-NVSC2025PE086139

PATIENT
  Age: 37 Year
  Sex: Female

DRUGS (8)
  1. KISQALI [Suspect]
     Active Substance: RIBOCICLIB SUCCINATE
     Indication: Breast cancer metastatic
     Dosage: 600 MG (200 MG), QD
     Route: 048
     Dates: start: 20250327
  2. KISQALI [Suspect]
     Active Substance: RIBOCICLIB SUCCINATE
     Dosage: 600 MG (200 MG), QD
     Route: 048
  3. PREDNISONE [Suspect]
     Active Substance: PREDNISONE
     Indication: Product used for unknown indication
     Dosage: UNK
     Route: 065
  4. FOLIC ACID [Concomitant]
     Active Substance: FOLIC ACID
     Indication: Product used for unknown indication
     Dosage: UNK
     Route: 065
  5. FERROUS SULFATE [Concomitant]
     Active Substance: FERROUS SULFATE
     Indication: Product used for unknown indication
     Dosage: UNK
     Route: 065
  6. DEXAMETHASONE [Concomitant]
     Active Substance: DEXAMETHASONE
     Indication: Product used for unknown indication
     Dosage: 8 UNK
     Route: 065
  7. PREDNISONE [Concomitant]
     Active Substance: PREDNISONE
     Indication: Product used for unknown indication
     Dosage: 20 MG
     Route: 065
  8. PREDNISONE [Concomitant]
     Active Substance: PREDNISONE
     Dosage: 15 MG
     Route: 065

REACTIONS (36)
  - Death [Fatal]
  - Pneumonia [Unknown]
  - Inflammation [Recovering/Resolving]
  - Dizziness [Unknown]
  - Headache [Recovering/Resolving]
  - Nausea [Unknown]
  - Confusional state [Unknown]
  - Seizure [Unknown]
  - Lymphadenopathy [Unknown]
  - Bone lesion [Unknown]
  - Hepatic lesion [Unknown]
  - Cushing^s syndrome [Unknown]
  - Swelling [Unknown]
  - Swelling face [Unknown]
  - Abdominal distension [Unknown]
  - Decreased immune responsiveness [Unknown]
  - Haemoglobin abnormal [Unknown]
  - Peripheral swelling [Unknown]
  - Somnolence [Unknown]
  - Joint swelling [Unknown]
  - Diarrhoea [Unknown]
  - Constipation [Unknown]
  - Candida infection [Unknown]
  - Tongue discolouration [Unknown]
  - Taste disorder [Unknown]
  - Ear disorder [Unknown]
  - Central nervous system lesion [Not Recovered/Not Resolved]
  - Cortisol abnormal [Unknown]
  - Adrenal disorder [Unknown]
  - Tinnitus [Unknown]
  - Speech disorder [Recovered/Resolved]
  - Abdominal pain upper [Unknown]
  - Bone disorder [Unknown]
  - Liver disorder [Unknown]
  - Feeling abnormal [Unknown]
  - Vomiting [Unknown]

NARRATIVE: CASE EVENT DATE: 20250501
